FAERS Safety Report 5340781-6 (Version None)
Quarter: 2007Q2

REPORT INFORMATION
  Report Type: 
  Country: None (occurrence: None)
  Receive Date: 20070405
  Receipt Date: 20070108
  Transmission Date: 20071010
  Serious: No
  Sender: FDA-Public Use
  Company Number: US200701001336

PATIENT
  Age: 57 Year
  Sex: Female

DRUGS (2)
  1. CYMBALTA [Suspect]
     Indication: TREMOR
     Dosage: 30 MG QOD ORAL
     Route: 048
     Dates: start: 20070106
  2. ALBUTEROL (SALBUTAMOL) INHALER [Concomitant]

REACTIONS (9)
  - COUGH [None]
  - DIZZINESS [None]
  - FEELING ABNORMAL [None]
  - HYPOGLYCAEMIA [None]
  - NAUSEA [None]
  - POLLAKIURIA [None]
  - THROAT TIGHTNESS [None]
  - URINE ABNORMALITY [None]
  - VISUAL ACUITY REDUCED [None]
